FAERS Safety Report 14014759 (Version 4)
Quarter: 2018Q2

REPORT INFORMATION
  Report Type: Spontaneous
  Country: US (occurrence: US)
  Receive Date: 20170927
  Receipt Date: 20180409
  Transmission Date: 20180711
  Serious: Yes (Hospitalization, Other)
  Sender: FDA-Public Use
  Company Number: US-PFIZER INC-2017413334

PATIENT
  Age: 73 Year
  Sex: Female
  Weight: 95.25 kg

DRUGS (2)
  1. IBRANCE [Suspect]
     Active Substance: PALBOCICLIB
     Indication: NEOPLASM MALIGNANT
     Dosage: 75 MG, UNK
  2. IBRANCE [Suspect]
     Active Substance: PALBOCICLIB
     Dosage: 75 MG, CYCLIC (DAILY FOR 7 DAYS, THEN OFF FOR 7 DAYS, AND SO ON)
     Route: 048

REACTIONS (14)
  - Cataract [Recovered/Resolved]
  - Feeling abnormal [Unknown]
  - Pain in extremity [Unknown]
  - Body surface area decreased [Unknown]
  - Head injury [Recovered/Resolved]
  - Nerve injury [Unknown]
  - Fall [Recovered/Resolved]
  - Blood test abnormal [Unknown]
  - Infection susceptibility increased [Unknown]
  - Cognitive disorder [Unknown]
  - Malaise [Unknown]
  - Weight increased [Unknown]
  - Memory impairment [Unknown]
  - Limb discomfort [Unknown]

NARRATIVE: CASE EVENT DATE: 20160707
